FAERS Safety Report 10215462 (Version 2)
Quarter: 2014Q2

REPORT INFORMATION
  Report Type: Report from Study
  Country: US (occurrence: US)
  Receive Date: 20140604
  Receipt Date: 20140617
  Transmission Date: 20141212
  Serious: Yes (Other)
  Sender: FDA-Public Use
  Company Number: US-ROCHE-1412435

PATIENT
  Age: 40 Year
  Sex: Female

DRUGS (15)
  1. XOLAIR [Suspect]
     Indication: ASTHMA
     Route: 065
     Dates: start: 201405
  2. KLONOPIN [Concomitant]
     Indication: NEUROPATHY PERIPHERAL
  3. ALBUTEROL [Concomitant]
     Indication: ASTHMA
     Route: 065
  4. CARAFATE [Concomitant]
     Indication: EOSINOPHILIC OESOPHAGITIS
  5. DICYCLOMINE [Concomitant]
     Indication: EOSINOPHILIC OESOPHAGITIS
  6. DICYCLOMINE [Concomitant]
     Indication: IRRITABLE BOWEL SYNDROME
  7. METFORMIN [Concomitant]
     Indication: DIABETES MELLITUS
  8. LANTUS [Concomitant]
     Indication: DIABETES MELLITUS
     Route: 065
  9. GABAPENTIN [Concomitant]
     Indication: MIGRAINE
  10. GABAPENTIN [Concomitant]
     Indication: NEUROPATHY PERIPHERAL
  11. TRAMADOL [Concomitant]
     Indication: MIGRAINE
  12. LORCET (UNITED STATES) [Concomitant]
     Indication: MIGRAINE
  13. LISINOPRIL [Concomitant]
     Indication: HYPERTENSION
  14. CYMBALTA [Concomitant]
     Indication: DEPRESSION
     Route: 048
  15. CYMBALTA [Concomitant]
     Indication: FIBROMYALGIA

REACTIONS (1)
  - Hypersensitivity [Unknown]
